FAERS Safety Report 10286680 (Version 1)
Quarter: 2014Q3

REPORT INFORMATION
  Report Type: Spontaneous
  Country: JP (occurrence: JP)
  Receive Date: 20140709
  Receipt Date: 20140709
  Transmission Date: 20150326
  Serious: Yes (Other)
  Sender: FDA-Public Use
  Company Number: JP-SA-2014SA090990

PATIENT
  Age: 62 Year
  Sex: Male
  Weight: 90.6 kg

DRUGS (23)
  1. MILNACIPRAN HYDROCHLORIDE. [Interacting]
     Active Substance: MILNACIPRAN HYDROCHLORIDE
     Indication: PRODUCT USED FOR UNKNOWN INDICATION
     Dosage: TREATMENT REGIMEN 2
     Route: 048
  2. DONEPEZIL HYDROCHLORIDE. [Interacting]
     Active Substance: DONEPEZIL HYDROCHLORIDE
     Indication: PRODUCT USED FOR UNKNOWN INDICATION
     Dosage: TREATMENT REGIMEN 1
     Route: 048
  3. BROMAZEPAM [Interacting]
     Active Substance: BROMAZEPAM
     Indication: PRODUCT USED FOR UNKNOWN INDICATION
     Dosage: TREATMENT REGIMEN 2
     Route: 048
  4. PROPOFOL. [Interacting]
     Active Substance: PROPOFOL
     Indication: INDUCTION OF ANAESTHESIA
     Dosage: TREATMENT REGIMEN 2
     Route: 065
  5. CHOLESTEROL- AND TRIGLYCERIDE REDUCERS [Concomitant]
     Active Substance: UNSPECIFIED INGREDIENT
     Route: 048
  6. THYROID PREPARATIONS [Concomitant]
     Active Substance: UNSPECIFIED INGREDIENT
     Route: 048
  7. MYSLEE [Suspect]
     Active Substance: ZOLPIDEM TARTRATE
     Indication: PRODUCT USED FOR UNKNOWN INDICATION
     Dosage: TREATMENT REGIMEN 1
     Route: 048
  8. DILTIAZEM HYDROCHLORIDE. [Interacting]
     Active Substance: DILTIAZEM HYDROCHLORIDE
     Indication: PRODUCT USED FOR UNKNOWN INDICATION
     Dosage: TREATMENT REGIMEN 2
     Route: 048
  9. MILNACIPRAN HYDROCHLORIDE. [Interacting]
     Active Substance: MILNACIPRAN HYDROCHLORIDE
     Indication: PRODUCT USED FOR UNKNOWN INDICATION
     Dosage: TREATMENT REGIMEN 1
     Route: 048
  10. MIANSERINE [Interacting]
     Active Substance: MIANSERIN HYDROCHLORIDE
     Indication: PRODUCT USED FOR UNKNOWN INDICATION
     Dosage: TREATMENT REGIMEN 1
     Route: 048
  11. AMOBARBITAL [Interacting]
     Active Substance: AMOBARBITAL
     Indication: PRODUCT USED FOR UNKNOWN INDICATION
     Dosage: TREATMENT REGIMEN 2
     Route: 048
  12. PROPOFOL. [Interacting]
     Active Substance: PROPOFOL
     Indication: INDUCTION OF ANAESTHESIA
     Dosage: TREATMENT REGIMEN 1
     Route: 065
  13. DIURETICS [Concomitant]
     Active Substance: UNSPECIFIED INGREDIENT
     Route: 048
  14. AMOBARBITAL [Interacting]
     Active Substance: AMOBARBITAL
     Indication: PRODUCT USED FOR UNKNOWN INDICATION
     Dosage: TREATMENT REGIMEN 1
     Route: 048
  15. BROMOVALERYLUREA [Interacting]
     Active Substance: BROMISOVAL
     Indication: PRODUCT USED FOR UNKNOWN INDICATION
     Dosage: TREATMENT REGIMEN 2
     Route: 048
  16. MYSLEE [Interacting]
     Active Substance: ZOLPIDEM TARTRATE
     Indication: PRODUCT USED FOR UNKNOWN INDICATION
     Dosage: TREATMENT REGIMEN 2
     Route: 048
  17. DONEPEZIL HYDROCHLORIDE. [Interacting]
     Active Substance: DONEPEZIL HYDROCHLORIDE
     Indication: PRODUCT USED FOR UNKNOWN INDICATION
     Dosage: TREATMENT REGIMEN 2
     Route: 048
  18. DILTIAZEM HYDROCHLORIDE. [Interacting]
     Active Substance: DILTIAZEM HYDROCHLORIDE
     Indication: PRODUCT USED FOR UNKNOWN INDICATION
     Dosage: TREATMENT REGIMEN 1
     Route: 048
  19. ROCURONIUM [Concomitant]
     Active Substance: ROCURONIUM BROMIDE
  20. MIANSERINE [Interacting]
     Active Substance: MIANSERIN HYDROCHLORIDE
     Indication: PRODUCT USED FOR UNKNOWN INDICATION
     Dosage: TREATMENT REGIMEN 2
     Route: 048
  21. BROMOVALERYLUREA [Interacting]
     Active Substance: BROMISOVAL
     Indication: PRODUCT USED FOR UNKNOWN INDICATION
     Dosage: TREATMENT REGIMEN 1
     Route: 048
  22. BROMAZEPAM [Interacting]
     Active Substance: BROMAZEPAM
     Indication: PRODUCT USED FOR UNKNOWN INDICATION
     Dosage: TREATMENT REGIMEN 1
     Route: 048
  23. ANTIHYPERTENSIVES [Concomitant]
     Active Substance: UNSPECIFIED INGREDIENT
     Route: 048

REACTIONS (2)
  - Hypotension [Unknown]
  - Drug interaction [Unknown]
